FAERS Safety Report 22976971 (Version 3)
Quarter: 2023Q4

REPORT INFORMATION
  Report Type: Spontaneous
  Country: US (occurrence: US)
  Receive Date: 20230925
  Receipt Date: 20231011
  Transmission Date: 20240110
  Serious: Yes (Other)
  Sender: FDA-Public Use
  Company Number: US-SA-SAC20230921000183

PATIENT
  Age: 62 Year
  Sex: Male

DRUGS (3)
  1. FLOMAX [Suspect]
     Active Substance: TAMSULOSIN HYDROCHLORIDE
     Indication: Product used for unknown indication
     Dosage: UNK
     Route: 058
  2. ORGOVYX [Suspect]
     Active Substance: RELUGOLIX
     Indication: Prostate cancer
     Dosage: 360 MG, QD
     Route: 048
     Dates: start: 20230119, end: 20230119
  3. ORGOVYX [Suspect]
     Active Substance: RELUGOLIX
     Dosage: 120 MG, QD
     Route: 048
     Dates: start: 20230120

REACTIONS (16)
  - Erectile dysfunction [Unknown]
  - Muscle atrophy [Unknown]
  - Onychoclasis [Not Recovered/Not Resolved]
  - Quality of life decreased [Unknown]
  - Loss of libido [Unknown]
  - Mental disorder [Unknown]
  - Depressed mood [Not Recovered/Not Resolved]
  - Impatience [Unknown]
  - Nocturia [Unknown]
  - Insomnia [Unknown]
  - Muscle mass [Unknown]
  - Mood altered [Unknown]
  - Fall [Unknown]
  - Dizziness [Unknown]
  - Dermatitis [Recovered/Resolved]
  - Fatigue [Unknown]
